FAERS Safety Report 18068112 (Version 1)
Quarter: 2020Q3

REPORT INFORMATION
  Report Type: Spontaneous
  Country: US (occurrence: US)
  Receive Date: 20200724
  Receipt Date: 20200724
  Transmission Date: 20201103
  Serious: Yes (Other)
  Sender: FDA-Public Use
  Company Number: US-ASTRAZENECA-2020SE91805

PATIENT
  Age: 916 Month
  Sex: Female

DRUGS (1)
  1. FASENRA [Suspect]
     Active Substance: BENRALIZUMAB
     Indication: ASTHMA
     Dosage: UNKNOWN
     Route: 058
     Dates: start: 201803, end: 202005

REACTIONS (3)
  - Dyspnoea [Unknown]
  - Anaemia [Unknown]
  - Chest pain [Unknown]

NARRATIVE: CASE EVENT DATE: 202007
